FAERS Safety Report 6953403-5 (Version None)
Quarter: 2010Q3

REPORT INFORMATION
  Report Type: 
  Country: None (occurrence: None)
  Receive Date: 20100829
  Receipt Date: 20100618
  Transmission Date: 20110219
  Serious: No
  Sender: FDA-Public Use
  Company Number: US-ABBOTT-10P-163-0652226-00

PATIENT
  Sex: Male

DRUGS (1)
  1. NIASPAN [Suspect]
     Indication: PRODUCT USED FOR UNKNOWN INDICATION
     Dosage: 500 X 2 @BEDTIME
     Dates: start: 20100601

REACTIONS (3)
  - HOT FLUSH [None]
  - MUSCLE SPASMS [None]
  - SKIN BURNING SENSATION [None]
